FAERS Safety Report 26013488 (Version 1)
Quarter: 2025Q4

REPORT INFORMATION
  Report Type: Spontaneous
  Country: US (occurrence: US)
  Receive Date: 20251107
  Receipt Date: 20251107
  Transmission Date: 20260117
  Serious: No
  Sender: PFIZER
  Company Number: US-PFIZER INC-202500217004

PATIENT
  Age: 49 Year
  Sex: Female

DRUGS (1)
  1. ZAVZPRET [Suspect]
     Active Substance: ZAVEGEPANT HYDROCHLORIDE
     Indication: Migraine
     Dosage: 1 SPRAY IN 1 NOSTRIL EVERY 24 HOURS AS NEEDED

REACTIONS (4)
  - Retching [Unknown]
  - Dysgeusia [Not Recovered/Not Resolved]
  - Product taste abnormal [Not Recovered/Not Resolved]
  - Therapeutic product effect incomplete [Unknown]
